FAERS Safety Report 4607695-8 (Version None)
Quarter: 2005Q1

REPORT INFORMATION
  Report Type: 
  Country: None (occurrence: None)
  Receive Date: 20050310
  Receipt Date: 20050221
  Transmission Date: 20050727
  Serious: Yes (Other)
  Sender: FDA-Public Use
  Company Number: B0372930A

PATIENT
  Age: 14 Year
  Sex: Female

DRUGS (2)
  1. MYLERAN [Suspect]
     Dosage: SEE DOSAGE TEXT
  2. ANTITHYMOCYTE IG [Concomitant]

REACTIONS (8)
  - ACCIDENTAL OVERDOSE [None]
  - CONVULSION [None]
  - CYTOMEGALOVIRUS INFECTION [None]
  - GRAFT VERSUS HOST DISEASE [None]
  - HYPERBILIRUBINAEMIA [None]
  - MEDICATION ERROR [None]
  - MULTI-ORGAN FAILURE [None]
  - SEPSIS [None]
